FAERS Safety Report 7225339-6 (Version None)
Quarter: 2011Q1

REPORT INFORMATION
  Report Type: 
  Country: None (occurrence: None)
  Receive Date: 20110113
  Receipt Date: 20110103
  Transmission Date: 20110831
  Serious: Yes (Hospitalization)
  Sender: FDA-Public Use
  Company Number: CH-WATSON-2011-00134

PATIENT
  Age: 77 Year
  Sex: Female

DRUGS (2)
  1. METHYLENE BLUE [Suspect]
     Indication: PARATHYROID GLAND OPERATION
     Dosage: 5 MG/KG, UNK
     Route: 042
  2. CLOMIPRAMINE HCL [Suspect]
     Indication: DEPRESSION
     Dosage: 75 MG, DAILY

REACTIONS (2)
  - SEROTONIN SYNDROME [None]
  - DRUG INTERACTION [None]
